FAERS Safety Report 6086451-0 (Version None)
Quarter: 2009Q1

REPORT INFORMATION
  Report Type: 
  Country: None (occurrence: None)
  Receive Date: 20090212
  Receipt Date: 20090130
  Transmission Date: 20090719
  Serious: Yes (Hospitalization)
  Sender: FDA-Public Use
  Company Number: VE-JNJFOC-20090200407

PATIENT
  Age: 61 Year
  Sex: Male

DRUGS (1)
  1. DECITABINE (DECITABINE) LYOPHILIZED POWDER [Suspect]
     Indication: MYELODYSPLASTIC SYNDROME
     Dosage: 15 MG/M2, INTRAVENOUS
     Route: 042

REACTIONS (2)
  - SKIN NECROSIS [None]
  - SKIN ULCER [None]
